FAERS Safety Report 9281384 (Version 1)
Quarter: 2013Q2

REPORT INFORMATION
  Report Type: Spontaneous
  Country: US (occurrence: US)
  Receive Date: 20130509
  Receipt Date: 20130509
  Transmission Date: 20140414
  Serious: No
  Sender: FDA-Public Use
  Company Number: US-ASTRAZENECA-2013SE28550

PATIENT
  Sex: Male

DRUGS (1)
  1. PULMICORT RESPULES GENERIC [Suspect]
     Route: 055

REACTIONS (1)
  - Dysphemia [Unknown]
